FAERS Safety Report 20879542 (Version 2)
Quarter: 2022Q3

REPORT INFORMATION
  Report Type: Spontaneous
  Country: GB (occurrence: GB)
  Receive Date: 20220526
  Receipt Date: 20220706
  Transmission Date: 20221026
  Serious: Yes (Death, Life-Threatening, Hospitalization)
  Sender: FDA-Public Use
  Company Number: GB-PFIZER INC-202200530262

PATIENT
  Age: 56 Year
  Sex: Male
  Weight: 115 kg

DRUGS (1)
  1. LORLATINIB [Suspect]
     Active Substance: LORLATINIB
     Indication: Non-small cell lung cancer
     Dosage: 100 MG, DAILY
     Route: 048
     Dates: start: 20211201, end: 20220407

REACTIONS (3)
  - Pneumonitis [Fatal]
  - Blood cholesterol increased [Unknown]
  - Mood altered [Unknown]

NARRATIVE: CASE EVENT DATE: 20220105
